FAERS Safety Report 9000173 (Version 1)
Quarter: 2013Q1

REPORT INFORMATION
  Report Type: Report from Study
  Country: JP (occurrence: JP)
  Receive Date: 20130102
  Receipt Date: 20130102
  Transmission Date: 20140127
  Serious: Yes (Hospitalization)
  Sender: FDA-Public Use
  Company Number: JP-MERCK-1212JPN011102

PATIENT
  Age: 61 Year
  Sex: Male

DRUGS (18)
  1. LOSARTAN POTASSIUM [Suspect]
     Dosage: UNK
     Route: 048
  2. ACTEMRA [Suspect]
     Indication: RHEUMATOID ARTHRITIS
     Dosage: 8 MG/KG, QD
     Route: 041
     Dates: start: 20120420, end: 20120420
  3. ACTEMRA [Suspect]
     Dosage: 8 MG/KG, QD
     Route: 041
     Dates: start: 20120829, end: 20120829
  4. ACTEMRA [Suspect]
     Dosage: UNK
     Dates: end: 2012
  5. SULFAMETHOXAZOLE (+) TRIMETHOPRIM [Suspect]
     Indication: PROPHYLAXIS
     Dosage: UNK
     Route: 048
     Dates: start: 20120525, end: 20120530
  6. PREDNISOLONE [Suspect]
     Indication: RHEUMATOID ARTHRITIS
     Dosage: 5 MG, QD
     Route: 048
     Dates: end: 20120524
  7. PREDNISOLONE [Suspect]
     Dosage: 30 MG, QD
     Dates: start: 20120525, end: 20120628
  8. PREDNISOLONE [Suspect]
     Dosage: 25 MG, QD
     Dates: start: 20120629, end: 20120726
  9. PREDNISOLONE [Suspect]
     Dosage: 20 MG, QD
     Dates: start: 20120727, end: 20120826
  10. PREDNISOLONE [Suspect]
     Dosage: 17.5 MG, QD
     Dates: start: 20120827
  11. CALCIUM ASPARTATE [Concomitant]
     Indication: PROPHYLAXIS
     Dosage: UNK
     Route: 048
  12. LANSOPRAZOLE [Concomitant]
     Indication: PROPHYLAXIS
     Dosage: UNK
     Route: 048
  13. SEIBULE [Concomitant]
     Indication: DIABETES MELLITUS
     Dosage: UNK
     Route: 048
  14. ONEALFA [Concomitant]
     Indication: PROPHYLAXIS
     Dosage: UNK
     Route: 048
  15. BONALON [Concomitant]
     Indication: PROPHYLAXIS
     Dosage: UNK
     Route: 048
  16. MAGLAX [Concomitant]
     Indication: PROPHYLAXIS
     Dosage: UNK
     Route: 048
     Dates: start: 20120518
  17. NOVORAPID [Concomitant]
     Indication: DIABETES MELLITUS
     Dosage: UNK
     Route: 058
  18. LANTUS [Concomitant]
     Indication: DIABETES MELLITUS
     Dosage: UNK
     Route: 058

REACTIONS (5)
  - Pneumocystis jirovecii pneumonia [Recovered/Resolved]
  - Panniculitis [Recovered/Resolved]
  - Interstitial lung disease [Unknown]
  - Rheumatoid arthritis [Recovering/Resolving]
  - Hyperkalaemia [Recovered/Resolved]
